FAERS Safety Report 4365883-2 (Version None)
Quarter: 2004Q2

REPORT INFORMATION
  Report Type: 
  Country: None (occurrence: None)
  Receive Date: 20040526
  Receipt Date: 20040526
  Transmission Date: 20050107
  Serious: No
  Sender: FDA-Public Use
  Company Number: None

PATIENT
  Age: 23 Year
  Sex: Male

DRUGS (3)
  1. AMIKACIN [Suspect]
     Dosage: 1000 MG Q-D IV
     Route: 042
  2. ACYCLOVIR [Concomitant]
  3. MEROPENEM [Concomitant]

REACTIONS (1)
  - BLOOD CREATININE INCREASED [None]
